FAERS Safety Report 12637452 (Version 1)
Quarter: 2016Q3

REPORT INFORMATION
  Report Type: Spontaneous
  Country: US (occurrence: US)
  Receive Date: 20160809
  Receipt Date: 20160809
  Transmission Date: 20161109
  Serious: No
  Sender: FDA-Public Use
  Company Number: US-BEH-2016062613

PATIENT
  Sex: Female
  Weight: 145 kg

DRUGS (34)
  1. PRIVIGEN [Suspect]
     Active Substance: HUMAN IMMUNOGLOBULIN G
     Route: 058
  2. PRIVIGEN [Suspect]
     Active Substance: HUMAN IMMUNOGLOBULIN G
     Route: 042
  3. SALINE MIST [Concomitant]
     Active Substance: SODIUM CHLORIDE
  4. SELENIUM [Concomitant]
     Active Substance: SELENIUM
  5. HYDROCHLORTHIAZIDE [Concomitant]
     Active Substance: HYDROCHLOROTHIAZIDE
  6. SUPER B COMPLEX [Concomitant]
     Active Substance: CYANOCOBALAMIN\DEXPANTHENOL\NIACINAMIDE\PYRIDOXINE HYDROCHLORIDE\RIBOFLAVIN 5^-PHOSPHATE SODIUM\THIAMINE HYDROCHLORIDE\VITAMIN B COMPLEX
  7. ZINC PICOLINATE [Concomitant]
     Active Substance: ZINC PICOLINATE
  8. PRIVIGEN [Suspect]
     Active Substance: HUMAN IMMUNOGLOBULIN G
     Route: 058
  9. MAXAIR [Concomitant]
     Active Substance: PIRBUTEROL ACETATE
  10. VITAMIN D [Concomitant]
     Active Substance: CHOLECALCIFEROL
  11. PRIVIGEN [Suspect]
     Active Substance: HUMAN IMMUNOGLOBULIN G
     Route: 058
     Dates: start: 20140123
  12. KLONIOPIN [Concomitant]
  13. VITAMIN A [Concomitant]
     Active Substance: VITAMIN A
  14. LISINOPRIL. [Concomitant]
     Active Substance: LISINOPRIL
  15. NORVASC [Concomitant]
     Active Substance: AMLODIPINE BESYLATE
  16. GLUCOSAMINE [Concomitant]
     Active Substance: GLUCOSAMINE
  17. PROZAC [Concomitant]
     Active Substance: FLUOXETINE HYDROCHLORIDE
  18. FLONASE [Concomitant]
     Active Substance: FLUTICASONE PROPIONATE
  19. DEXAMETHASONE. [Concomitant]
     Active Substance: DEXAMETHASONE
  20. PRIVIGEN [Suspect]
     Active Substance: HUMAN IMMUNOGLOBULIN G
     Route: 042
  21. VITAMIN C [Concomitant]
     Active Substance: ASCORBIC ACID
  22. DICLOFENAC [Concomitant]
     Active Substance: DICLOFENAC
  23. IBUPROFEN. [Concomitant]
     Active Substance: IBUPROFEN
  24. EPIPEN [Concomitant]
     Active Substance: EPINEPHRINE
  25. FLOVENT [Concomitant]
     Active Substance: FLUTICASONE PROPIONATE
  26. PRIVIGEN [Suspect]
     Active Substance: HUMAN IMMUNOGLOBULIN G
     Indication: IMMUNODEFICIENCY COMMON VARIABLE
     Route: 058
  27. CLONIDINE. [Concomitant]
     Active Substance: CLONIDINE
  28. PROBIOTIC [Concomitant]
     Active Substance: PROBIOTICS NOS
  29. VITAMIN B12 [Concomitant]
     Active Substance: CYANOCOBALAMIN
  30. LISINOPRIL. [Concomitant]
     Active Substance: LISINOPRIL
  31. DIPHENHYDRAMINE. [Concomitant]
     Active Substance: DIPHENHYDRAMINE
  32. RESTORIL [Concomitant]
     Active Substance: TEMAZEPAM
  33. NORMAL SALINE [Concomitant]
     Active Substance: SODIUM CHLORIDE
  34. SODIUM CHLORIDE. [Concomitant]
     Active Substance: SODIUM CHLORIDE

REACTIONS (1)
  - Chronic sinusitis [Unknown]
